FAERS Safety Report 8466157-0 (Version None)
Quarter: 2012Q2

REPORT INFORMATION
  Report Type: 
  Country: None (occurrence: None)
  Receive Date: 20120619
  Receipt Date: 20120604
  Transmission Date: 20120825
  Serious: Yes (Hospitalization)
  Sender: FDA-Public Use
  Company Number: ENTC2012-0255

PATIENT
  Age: 80 Year
  Sex: Female

DRUGS (5)
  1. STALEVO 50 [Suspect]
     Indication: PARKINSON'S DISEASE
     Dosage: 3 DF (150/37.5/200 MG) DAILY
     Dates: start: 20120217, end: 20120306
  2. AZILECT [Concomitant]
  3. DUSPATALIN [Concomitant]
  4. MIRTAZAPINE [Concomitant]
  5. TRANXENE [Concomitant]

REACTIONS (6)
  - DECREASED APPETITE [None]
  - FUNCTIONAL GASTROINTESTINAL DISORDER [None]
  - HYPOKALAEMIA [None]
  - DIARRHOEA [None]
  - NAUSEA [None]
  - PROTEIN TOTAL DECREASED [None]
